FAERS Safety Report 6168624-1 (Version None)
Quarter: 2009Q2

REPORT INFORMATION
  Report Type: 
  Country: None (occurrence: None)
  Receive Date: 20090424
  Receipt Date: 20090424
  Transmission Date: 20091009
  Serious: Yes (Hospitalization)
  Sender: FDA-Public Use
  Company Number: None

PATIENT
  Age: 48 Year
  Sex: Female

DRUGS (2)
  1. METHYLPREDNISOLONE 4MG TAB [Suspect]
     Indication: GRAFT VERSUS HOST DISEASE
     Dosage: 80-20 MG -TAPERED- Q12H IV
     Route: 042
     Dates: start: 20081002, end: 20090227
  2. PREDNISONE TAB [Suspect]
     Dosage: 60-7.5 MG -TAPERED- DAILY PO
     Route: 048

REACTIONS (5)
  - ASTHENIA [None]
  - BLOOD MAGNESIUM DECREASED [None]
  - BLOOD POTASSIUM DECREASED [None]
  - GAIT DISTURBANCE [None]
  - MYOPATHY [None]
